FAERS Safety Report 20722302 (Version 2)
Quarter: 2022Q2

REPORT INFORMATION
  Report Type: Other
  Country: None (occurrence: US)
  Receive Date: 20220418
  Receipt Date: 20220427
  Transmission Date: 20220721
  Serious: Yes (Life-Threatening)
  Sender: FDA-Public Use
  Company Number: US-Mission Pharmacal Company-2127887

PATIENT
  Age: 52 Year
  Sex: Male

DRUGS (2)
  1. THIOLA EC [Suspect]
     Active Substance: TIOPRONIN
     Indication: Cystinuria
     Route: 048
     Dates: start: 20191001
  2. THIOLA [Suspect]
     Active Substance: TIOPRONIN
     Route: 048
     Dates: start: 20170121, end: 20191001

REACTIONS (6)
  - Sepsis [Unknown]
  - Blood potassium increased [Unknown]
  - Renal failure [Unknown]
  - Chromaturia [Unknown]
  - Dyspepsia [Recovered/Resolved]
  - Eructation [Recovered/Resolved]
